FAERS Safety Report 19464353 (Version 1)
Quarter: 2021Q2

REPORT INFORMATION
  Report Type: Spontaneous
  Country: TR (occurrence: TR)
  Receive Date: 20210627
  Receipt Date: 20210627
  Transmission Date: 20210717
  Serious: Yes (Life-Threatening, Other)
  Sender: FDA-Public Use
  Company Number: NVSC2020TR350236

PATIENT
  Age: 21 Year
  Sex: Male

DRUGS (1)
  1. TRILEPTAL [Suspect]
     Active Substance: OXCARBAZEPINE
     Indication: EPILEPSY
     Dosage: 600 MG
     Route: 065
     Dates: start: 2003

REACTIONS (3)
  - Near death experience [Unknown]
  - Seizure [Unknown]
  - Product supply issue [Unknown]
